FAERS Safety Report 14329184 (Version 2)
Quarter: 2018Q1

REPORT INFORMATION
  Report Type: Spontaneous
  Country: AU (occurrence: AU)
  Receive Date: 20171227
  Receipt Date: 20180126
  Transmission Date: 20180509
  Serious: Yes (Life-Threatening, Other)
  Sender: FDA-Public Use
  Company Number: AU-SUNOVION-2017DSP007105

PATIENT
  Age: 40 Year
  Sex: Female

DRUGS (5)
  1. LATUDA [Suspect]
     Active Substance: LURASIDONE HYDROCHLORIDE
     Dosage: 80 MG, QD
     Route: 048
  2. FLUVOXAMINE GA [Concomitant]
     Route: 065
  3. INSULIN 2 [Concomitant]
     Route: 065
  4. THYROXINE [Concomitant]
     Active Substance: LEVOTHYROXINE
     Route: 065
  5. PALIPERIDONE. [Concomitant]
     Active Substance: PALIPERIDONE
     Dosage: 50 MG, ONCE PER MONTH
     Route: 065

REACTIONS (4)
  - Cholestasis [Recovered/Resolved]
  - Caesarean section [Unknown]
  - Gestational diabetes [Recovered/Resolved]
  - Maternal exposure during pregnancy [Unknown]

NARRATIVE: CASE EVENT DATE: 20160622
